FAERS Safety Report 7488304-X (Version None)
Quarter: 2011Q2

REPORT INFORMATION
  Report Type: 
  Country: None (occurrence: None)
  Receive Date: 20110518
  Receipt Date: 20110510
  Transmission Date: 20111010
  Serious: Yes (Hospitalization, Other)
  Sender: FDA-Public Use
  Company Number: CN-NOVOPROD-325412

PATIENT
  Age: 60 Year
  Sex: Female

DRUGS (2)
  1. NOVOLOG MIX 70/30 [Suspect]
     Dosage: 12U IN THE MORNING AND 12U AT NIGHT
     Route: 058
  2. NOVOLOG MIX 70/30 [Suspect]
     Indication: TYPE 2 DIABETES MELLITUS
     Dosage: 12U IN THE MORNING AND 12U AT NIGHT
     Route: 058

REACTIONS (5)
  - LOWER LIMB FRACTURE [None]
  - DIZZINESS [None]
  - HYPOGLYCAEMIA [None]
  - FALL [None]
  - PRODUCT DEPOSIT [None]
